FAERS Safety Report 4588598-4 (Version None)
Quarter: 2005Q1

REPORT INFORMATION
  Report Type: 
  Country: None (occurrence: None)
  Receive Date: 20050222
  Receipt Date: 20050128
  Transmission Date: 20050727
  Serious: Yes (Hospitalization)
  Sender: FDA-Public Use
  Company Number: US-ROCHE-394115

PATIENT
  Age: 51 Year
  Sex: Male
  Weight: 102.1 kg

DRUGS (9)
  1. COPEGUS [Suspect]
     Indication: HEPATITIS C
     Route: 048
     Dates: start: 20040819, end: 20040915
  2. COPEGUS [Suspect]
     Route: 048
     Dates: start: 20040915
  3. NAPROXEN [Suspect]
     Indication: PAIN
     Dosage: TAKEN ^WHEN REQUIRED^
     Route: 048
  4. PEG-INTRON [Suspect]
     Indication: HEPATITIS C
     Route: 058
     Dates: start: 20040819
  5. IRON [Concomitant]
     Route: 048
  6. METOPROLOL TARTRATE [Concomitant]
     Route: 048
  7. VITAMIN C [Concomitant]
     Route: 048
  8. LORATADINE [Concomitant]
     Indication: HYPERSENSITIVITY
     Dosage: DOSE TAKEN ^WHEN REQUIRED^
     Route: 048
  9. OMEPRAZOLE [Concomitant]
     Dosage: INCREASED TO 20MG BID ON HOSPITALISATION
     Route: 048

REACTIONS (5)
  - ABDOMINAL PAIN [None]
  - DEPRESSION [None]
  - HAEMORRHOIDS [None]
  - PSYCHOTIC DISORDER [None]
  - RECTAL HAEMORRHAGE [None]
